FAERS Safety Report 9342341 (Version 1)
Quarter: 2013Q2

REPORT INFORMATION
  Report Type: Spontaneous
  Country: PL (occurrence: PL)
  Receive Date: 20130611
  Receipt Date: 20130611
  Transmission Date: 20140414
  Serious: Yes (Hospitalization, Other)
  Sender: FDA-Public Use
  Company Number: PL-JNJFOC-20130606441

PATIENT
  Age: 37 Year
  Sex: Female
  Weight: 50 kg

DRUGS (7)
  1. INFLIXIMAB [Suspect]
     Indication: CROHN^S DISEASE
     Route: 042
     Dates: start: 20110706, end: 20130524
  2. DUSPATALIN RETARD [Concomitant]
     Indication: CROHN^S DISEASE
     Route: 065
     Dates: start: 20120809
  3. PENTASA [Concomitant]
     Indication: CROHN^S DISEASE
     Route: 065
     Dates: start: 20050101
  4. CONTROLOC [Concomitant]
     Indication: CROHN^S DISEASE
     Route: 065
  5. KALDYUM [Concomitant]
     Indication: CROHN^S DISEASE
     Route: 065
     Dates: start: 20120501
  6. IMURAN [Concomitant]
     Indication: CROHN^S DISEASE
     Route: 065
     Dates: start: 20110817
  7. FOLIC ACID [Concomitant]
     Indication: CROHN^S DISEASE
     Route: 065
     Dates: start: 20120501

REACTIONS (4)
  - Crohn^s disease [Recovered/Resolved]
  - Erythema nodosum [Recovered/Resolved]
  - Arthralgia [Recovered/Resolved]
  - C-reactive protein increased [Recovering/Resolving]
